FAERS Safety Report 11771034 (Version 2)
Quarter: 2016Q1

REPORT INFORMATION
  Report Type: Spontaneous
  Country: US (occurrence: US)
  Receive Date: 20151124
  Receipt Date: 20160115
  Transmission Date: 20160525
  Serious: No
  Sender: FDA-Public Use
  Company Number: US-ASTRAZENECA-2015SF10374

PATIENT
  Sex: Female
  Weight: 70.8 kg

DRUGS (2)
  1. VENTOLIN [Concomitant]
     Active Substance: ALBUTEROL SULFATE
     Dosage: TWO TIMES A DAY
  2. SYMBICORT [Suspect]
     Active Substance: BUDESONIDE\FORMOTEROL FUMARATE DIHYDRATE
     Indication: ASTHMA
     Dosage: 160/4.5MCG TWO PUFFS TWO TIMES A DAY
     Route: 055

REACTIONS (4)
  - Stomatitis [Recovered/Resolved]
  - Body height abnormal [Unknown]
  - Product quality issue [Unknown]
  - Intentional device misuse [Unknown]
